FAERS Safety Report 25795871 (Version 1)
Quarter: 2025Q3

REPORT INFORMATION
  Report Type: Spontaneous
  Country: US (occurrence: None)
  Receive Date: 20250911
  Receipt Date: 20250911
  Transmission Date: 20251021
  Serious: Yes (Hospitalization)
  Sender: FDA-CTU
  Company Number: None

PATIENT
  Age: 54 Year
  Sex: Male

DRUGS (6)
  1. EMTRICITABINE\TENOFOVIR [Suspect]
     Active Substance: EMTRICITABINE\TENOFOVIR
     Indication: HIV infection
     Dosage: FREQUENCY : DAILY;?
     Route: 048
     Dates: start: 20250820
  2. RITONAVIR [Suspect]
     Active Substance: RITONAVIR
     Indication: HIV infection
     Dosage: FREQUENCY : DAILY;?
     Route: 048
     Dates: start: 20250820
  3. DIVALPROEX SODIUM [Concomitant]
     Active Substance: DIVALPROEX SODIUM
  4. OLANZAPINE [Concomitant]
     Active Substance: OLANZAPINE
  5. QUETIAPINE [Concomitant]
     Active Substance: QUETIAPINE
  6. FOSAMPRENAVIR [Concomitant]
     Active Substance: FOSAMPRENAVIR

REACTIONS (2)
  - Bronchitis [None]
  - Chest pain [None]

NARRATIVE: CASE EVENT DATE: 20250911
